FAERS Safety Report 12234010 (Version 1)
Quarter: 2016Q2

REPORT INFORMATION
  Report Type: Other
  Country: DE (occurrence: DE)
  Receive Date: 20160404
  Receipt Date: 20160404
  Transmission Date: 20160815
  Serious: Yes (Other)
  Sender: FDA-Public Use
  Company Number: DE-LUPIN PHARMACEUTICALS INC.-E2B_00005185

PATIENT
  Age: 1 Day
  Sex: Female
  Weight: 2.7 kg

DRUGS (5)
  1. QUETIAPINE. [Suspect]
     Active Substance: QUETIAPINE
     Dosage: 150MG
     Route: 064
     Dates: end: 20151025
  2. DOPPELHERZ [Concomitant]
     Active Substance: DIETARY SUPPLEMENT
     Indication: PROPHYLAXIS OF NEURAL TUBE DEFECT
     Route: 064
  3. QUETIAPINE. [Suspect]
     Active Substance: QUETIAPINE
     Indication: MANIA
     Dosage: 300MG
     Route: 064
     Dates: start: 20150114
  4. QUETIAPINE. [Suspect]
     Active Substance: QUETIAPINE
     Dosage: 200MG
     Route: 064
  5. RIZINUSOL [Concomitant]
     Indication: LABOUR INDUCTION
     Route: 064

REACTIONS (4)
  - Small for dates baby [Recovered/Resolved]
  - Hypoglycaemia neonatal [Recovered/Resolved]
  - Temperature regulation disorder [Recovered/Resolved]
  - Foetal exposure during pregnancy [Unknown]

NARRATIVE: CASE EVENT DATE: 20151025
